FAERS Safety Report 7046554-0 (Version None)
Quarter: 2010Q4

REPORT INFORMATION
  Report Type: 
  Country: None (occurrence: None)
  Receive Date: 20101015
  Receipt Date: 20101007
  Transmission Date: 20110411
  Serious: Yes (Hospitalization)
  Sender: FDA-Public Use
  Company Number: US-BIOGENIDEC-2010BI015578

PATIENT
  Age: 48 Year
  Sex: Female
  Weight: 73 kg

DRUGS (2)
  1. AVONEX [Suspect]
     Indication: MULTIPLE SCLEROSIS
     Route: 030
     Dates: start: 19961001, end: 20030101
  2. AVONEX [Suspect]
     Route: 030
     Dates: start: 20030101

REACTIONS (9)
  - ABASIA [None]
  - APPENDICITIS PERFORATED [None]
  - DEEP VEIN THROMBOSIS [None]
  - FRACTURE [None]
  - HYPERPARATHYROIDISM PRIMARY [None]
  - HYPOPARATHYROIDISM SECONDARY [None]
  - PNEUMOTHORAX [None]
  - ROAD TRAFFIC ACCIDENT [None]
  - SUBDURAL HAEMATOMA [None]
